FAERS Safety Report 16620904 (Version 1)
Quarter: 2019Q3

REPORT INFORMATION
  Report Type: Spontaneous
  Country: US (occurrence: US)
  Receive Date: 20190723
  Receipt Date: 20190723
  Transmission Date: 20191004
  Serious: No
  Sender: FDA-Public Use
  Company Number: US-TEVA-2019-US-1081392

PATIENT
  Age: 58 Year
  Sex: Male

DRUGS (5)
  1. ATROPINE. [Concomitant]
     Active Substance: ATROPINE
     Indication: INFECTIVE KERATITIS
     Dosage: ADMINISTERED ONCE DAILY
     Route: 065
  2. NATAMYCIN [Suspect]
     Active Substance: NATAMYCIN
     Indication: INFECTIVE KERATITIS
     Dosage: EYE DROPS ADMINISTERED EVERY HOUR
     Route: 050
  3. CYCLOSPORINE-A [Concomitant]
     Active Substance: CYCLOSPORINE
     Indication: INFECTIVE KERATITIS
     Dosage: EYE DROPS ADMINISTERED FOUR TIMES DAILY
     Route: 050
  4. FLUCONAZOLE. [Suspect]
     Active Substance: FLUCONAZOLE
     Indication: INFECTIVE KERATITIS
     Dosage: 400 MILLIGRAM DAILY; CONTINUED AFTER RIBOFLAVIN PHOTODYNAMIC ANTIMICROBIAL THERAPY
     Route: 065
  5. MOXIFLOXACIN. [Suspect]
     Active Substance: MOXIFLOXACIN
     Indication: INFECTIVE KERATITIS
     Dosage: EYE DROPS ADMINISTERED EVERY 4 HOURS; CONTINUED
     Route: 050

REACTIONS (1)
  - Drug ineffective [Unknown]
